FAERS Safety Report 18377150 (Version 1)
Quarter: 2020Q4

REPORT INFORMATION
  Report Type: Spontaneous
  Country: US (occurrence: US)
  Receive Date: 20201013
  Receipt Date: 20201013
  Transmission Date: 20210114
  Serious: No
  Sender: FDA-Public Use
  Company Number: US-PFIZER INC-2020393073

PATIENT
  Age: 68 Year
  Sex: Male
  Weight: 99.79 kg

DRUGS (3)
  1. CIALIS [Suspect]
     Active Substance: TADALAFIL
     Indication: ERECTILE DYSFUNCTION
     Dosage: 20 MG, AS NEEDED (20MG, 1 TABLET BY MOUTH AS NEEDED ON EMPTY STOMACH, NO GREASE)
     Route: 048
  2. LEVITRA [Suspect]
     Active Substance: VARDENAFIL HYDROCHLORIDE
     Indication: ERECTILE DYSFUNCTION
     Dosage: 1 DF, AS NEEDED (1 BY MOUTH ONCE AS NEEDED)
     Route: 048
  3. VIAGRA [Suspect]
     Active Substance: SILDENAFIL CITRATE
     Indication: ERECTILE DYSFUNCTION
     Dosage: 100 MG, AS NEEDED (1 TABLET ONCE AS NEEDED)
     Route: 048

REACTIONS (1)
  - Drug ineffective [Not Recovered/Not Resolved]
